FAERS Safety Report 14047127 (Version 1)
Quarter: 2017Q4

REPORT INFORMATION
  Report Type: Other
  Country: CN (occurrence: CN)
  Receive Date: 20171005
  Receipt Date: 20171005
  Transmission Date: 20180321
  Serious: Yes (Other)
  Sender: FDA-Public Use
  Company Number: CN-ASTELLAS-2017US039497

PATIENT
  Age: 52 Year
  Sex: Female
  Weight: 54 kg

DRUGS (2)
  1. PROGRAF [Suspect]
     Active Substance: TACROLIMUS\TACROLIMUS ANHYDROUS
     Indication: IMMUNE THROMBOCYTOPENIC PURPURA
     Dosage: 1 PELLET, ONCE DAILY
     Route: 048
     Dates: start: 20161214, end: 20170825
  2. PREDNISONE ACETATE [Concomitant]
     Active Substance: PREDNISONE ACETATE
     Indication: THROMBOCYTOPENIA
     Route: 048
     Dates: start: 20161213, end: 20170321

REACTIONS (3)
  - Neoplasm [Unknown]
  - Skin papilloma [Not Recovered/Not Resolved]
  - Off label use [Unknown]

NARRATIVE: CASE EVENT DATE: 20161214
